FAERS Safety Report 8001822 (Version 2)
Quarter: 2013Q2

REPORT INFORMATION
  Report Type: Spontaneous
  Country: US (occurrence: None)
  Receive Date: 20110524
  Receipt Date: 20120621
  Transmission Date: 20140414
  Serious: Yes (Other)
  Sender: FDA-Public Use
  Company Number: 029066

PATIENT
  Sex: Female
  Weight: 99.3 kg

DRUGS (6)
  1. CIMZIA [Suspect]
     Indication: CROHN^S DISEASE
     Dosage: (INDUCTION DOSE SUBCUTANEOUS) ; (2 SHOTS ONCE EVERY MONTH SUBCUTANEOUS)
     Route: 058
     Dates: start: 201003
  2. SULFAZINE [Concomitant]
  3. LEVONORGESTREL + ETHINYL ESTRADIOL [Concomitant]
  4. M.V.I. ADULT [Concomitant]
  5. VITAMIN B12 /00056201/ [Concomitant]
  6. FISH OIL [Concomitant]

REACTIONS (4)
  - ABDOMINAL PAIN [None]
  - DIARRHOEA [None]
  - PREMATURE MENOPAUSE [None]
  - FLATULENCE [None]
